FAERS Safety Report 7667702-5 (Version None)
Quarter: 2011Q3

REPORT INFORMATION
  Report Type: 
  Country: None (occurrence: None)
  Receive Date: 20110806
  Receipt Date: 20110705
  Transmission Date: 20111222
  Serious: No
  Sender: FDA-Public Use
  Company Number: US-ABBOTT-11P-163-0836881-00

PATIENT
  Sex: Male
  Weight: 81.72 kg

DRUGS (17)
  1. ARICEPT [Concomitant]
     Indication: MEMORY IMPAIRMENT
     Route: 048
  2. TRAMADOL HCL [Concomitant]
     Indication: ARTHRITIS
     Route: 048
  3. OMEPRAZOLE [Concomitant]
     Indication: ABDOMINAL PAIN UPPER
     Route: 048
  4. AMBIEN [Concomitant]
     Indication: INSOMNIA
     Dosage: ONCE DAILY AT BEDTIME, AS NEEDED
     Route: 048
  5. OXYBUTYNIN [Concomitant]
     Indication: BLADDER DISORDER
     Route: 048
  6. VITAMIN D [Concomitant]
     Indication: VITAMIN SUPPLEMENTATION
     Route: 048
  7. NIASPAN [Suspect]
     Indication: BLOOD CHOLESTEROL INCREASED
     Route: 048
     Dates: start: 20100601
  8. PRIMIDONE [Concomitant]
     Indication: CONVULSION
     Route: 048
  9. ORACEA [Concomitant]
     Indication: ROSACEA
     Route: 048
  10. NAMENDA [Concomitant]
     Indication: MEMORY IMPAIRMENT
     Route: 048
  11. CELEBREX [Concomitant]
     Indication: ARTHRITIS
     Route: 048
  12. SPIRONOLACTONE AND HYDROCHLOROTHIAZIDE [Concomitant]
     Indication: HYPERTENSION
     Route: 048
  13. FLUTICASONE PROPIONATE [Concomitant]
     Indication: EOSINOPHIL COUNT
     Dosage: TWICE DAILY AS NEEDED
     Route: 055
  14. ASPIRIN [Concomitant]
     Indication: CARDIAC DISORDER
     Route: 048
  15. SYNTHROID [Concomitant]
     Indication: HYPOTHYROIDISM
     Route: 048
  16. NEURONTIN [Concomitant]
     Indication: NEUROPATHY PERIPHERAL
  17. IPRATROPIUM BROMIDE [Concomitant]
     Indication: CHRONIC OBSTRUCTIVE PULMONARY DISEASE
     Route: 055

REACTIONS (4)
  - FLUSHING [None]
  - PRURITUS [None]
  - FEELING HOT [None]
  - GENERALISED ERYTHEMA [None]
